FAERS Safety Report 21358273 (Version 4)
Quarter: 2023Q1

REPORT INFORMATION
  Report Type: Spontaneous
  Country: DE (occurrence: DE)
  Receive Date: 20220921
  Receipt Date: 20230220
  Transmission Date: 20230418
  Serious: Yes (Hospitalization, Other)
  Sender: FDA-Public Use
  Company Number: DE-ADRED-05472-01

PATIENT
  Age: 83 Year
  Sex: Female
  Weight: 70 kg

DRUGS (10)
  1. MIRTAZAPINE [Interacting]
     Active Substance: MIRTAZAPINE
     Indication: Product used for unknown indication
     Dosage: 30 MG, 0-0-0-1, TABLETS
     Route: 048
  2. CANDESARTAN [Interacting]
     Active Substance: CANDESARTAN
     Indication: Product used for unknown indication
     Dosage: 16 MG, 1-0-1.5-0, TABLETS
     Route: 048
  3. AMLODIPINE [Interacting]
     Active Substance: AMLODIPINE BESYLATE
     Indication: Product used for unknown indication
     Dosage: 5 MG, 0-0-1-0, TABLET
     Route: 048
  4. BISOPROLOL [Interacting]
     Active Substance: BISOPROLOL
     Indication: Product used for unknown indication
     Dosage: 5 MG, 0.5-0-0.5-0, TABLETS
     Route: 048
  5. BRIVUDINE [Interacting]
     Active Substance: BRIVUDINE
     Indication: Product used for unknown indication
     Dosage: 125 MG, 0-1-0-0, TABLETS
     Route: 048
  6. TORSEMIDE [Interacting]
     Active Substance: TORSEMIDE
     Indication: Product used for unknown indication
     Dosage: 5 MG, 1-0-0-0, TABLETS
     Route: 048
  7. PREGABALIN [Interacting]
     Active Substance: PREGABALIN
     Indication: Product used for unknown indication
     Dosage: 50 MG, 1-0-0-1, CAPSULES
     Route: 048
  8. METAMIZOLE [Concomitant]
     Active Substance: METAMIZOLE
     Dosage: 500 MG, 1-1-1-1, TABLETS
     Route: 048
  9. EDOXABAN [Concomitant]
     Active Substance: EDOXABAN
     Dosage: 60 MG, 1-0-0-0, TABLETS
     Route: 048
  10. ATORVASTATIN [Concomitant]
     Active Substance: ATORVASTATIN
     Dosage: 40 MG, 0-0-1-0, TABLETS
     Route: 048

REACTIONS (18)
  - Product prescribing error [Unknown]
  - Systemic infection [Unknown]
  - Product prescribing error [Unknown]
  - Hypokalaemia [Unknown]
  - Labelled drug-drug interaction medication error [Unknown]
  - Tremor [Unknown]
  - Product monitoring error [Unknown]
  - Labelled drug-drug interaction medication error [Unknown]
  - Hyponatraemia [Unknown]
  - Acute kidney injury [Unknown]
  - Hypertension [Unknown]
  - Therapeutic drug monitoring analysis not performed [Unknown]
  - Product prescribing error [Unknown]
  - Herpes zoster [Unknown]
  - Product monitoring error [Unknown]
  - Tachycardia [Unknown]
  - Dyspnoea [Unknown]
  - Oedema peripheral [Unknown]

NARRATIVE: CASE EVENT DATE: 20200206
